FAERS Safety Report 11626932 (Version 2)
Quarter: 2015Q4

REPORT INFORMATION
  Report Type: Spontaneous
  Country: US (occurrence: US)
  Receive Date: 20151013
  Receipt Date: 20151116
  Transmission Date: 20160304
  Serious: Yes (Other)
  Sender: FDA-Public Use
  Company Number: US-009507513-1510USA004183

PATIENT
  Sex: Female
  Weight: 79.82 kg

DRUGS (4)
  1. TRAMADOL HYDROCHLORIDE (+) KETOROLAC TROMETHAMINE [Concomitant]
     Dosage: UNK
  2. NEXPLANON [Suspect]
     Active Substance: ETONOGESTREL
     Indication: CONTRACEPTION
     Dosage: 68 MG/ONE ROD EVERY THREE YEARS
     Route: 059
     Dates: start: 20131003, end: 20150826
  3. METHADONE HYDROCHLORIDE. [Concomitant]
     Active Substance: METHADONE HYDROCHLORIDE
     Dosage: UNK
  4. NORCO [Concomitant]
     Active Substance: ACETAMINOPHEN\HYDROCODONE BITARTRATE
     Dosage: UNK

REACTIONS (3)
  - Pregnancy with implant contraceptive [Recovered/Resolved]
  - Unintended pregnancy [Recovered/Resolved]
  - Abortion [Unknown]

NARRATIVE: CASE EVENT DATE: 2015
